FAERS Safety Report 8922084 (Version 3)
Quarter: 2012Q4

REPORT INFORMATION
  Report Type: 
  Country: CN (occurrence: CN)
  Receive Date: 20121123
  Receipt Date: 20121228
  Transmission Date: 20130627
  Serious: Yes (Hospitalization)
  Sender: FDA-Public Use
  Company Number: PHHY2012CN106067

PATIENT
  Age: 60 Year
  Sex: Female

DRUGS (1)
  1. ACLASTA [Suspect]
     Indication: OSTEOPOROSIS
     Dosage: 5 mg/100 ml,
     Route: 042
     Dates: start: 20121112

REACTIONS (3)
  - Haemoptysis [Unknown]
  - Cough [Unknown]
  - Pyrexia [Unknown]
